FAERS Safety Report 16030656 (Version 2)
Quarter: 2019Q1

REPORT INFORMATION
  Report Type: Spontaneous
  Country: US (occurrence: US)
  Receive Date: 20190304
  Receipt Date: 20190321
  Transmission Date: 20190418
  Serious: Yes (Death)
  Sender: FDA-Public Use
  Company Number: US-PFIZER INC-2019080036

PATIENT
  Age: 88 Year
  Sex: Male

DRUGS (1)
  1. INLYTA [Suspect]
     Active Substance: AXITINIB
     Indication: COLON CANCER
     Dosage: 5 MG, 1X/DAY
     Route: 048
     Dates: start: 20190201

REACTIONS (5)
  - Death [Fatal]
  - Pollakiuria [Unknown]
  - Weight fluctuation [Unknown]
  - Constipation [Recovering/Resolving]
  - Product use in unapproved indication [Unknown]

NARRATIVE: CASE EVENT DATE: 20190318
